FAERS Safety Report 9685955 (Version 2)
Quarter: 2013Q4

REPORT INFORMATION
  Report Type: Spontaneous
  Country: US (occurrence: US)
  Receive Date: 20131113
  Receipt Date: 20131113
  Transmission Date: 20140711
  Serious: No
  Sender: FDA-Public Use
  Company Number: US-ALLERGAN-1310688US

PATIENT
  Age: 62 Year
  Sex: Male

DRUGS (3)
  1. COMBIGAN[R] [Suspect]
     Indication: GLAUCOMA
     Dosage: 2 GTT, BID
     Route: 047
  2. LUMIGAN 0.01% [Concomitant]
     Indication: GLAUCOMA
     Dosage: UNK
  3. SYSTANE [Concomitant]
     Indication: EYE LUBRICATION THERAPY
     Dosage: 2 GTT, PRN
     Route: 047

REACTIONS (2)
  - Rash erythematous [Recovered/Resolved]
  - Exfoliative rash [Recovered/Resolved]
